FAERS Safety Report 8880531 (Version 2)
Quarter: 2013Q2

REPORT INFORMATION
  Report Type: Spontaneous
  Country: US (occurrence: US)
  Receive Date: 20121031
  Receipt Date: 20130415
  Transmission Date: 20140414
  Serious: Yes (Hospitalization, Other)
  Sender: FDA-Public Use
  Company Number: US-ASTRAZENECA-2012SE80334

PATIENT
  Age: 73 Year
  Sex: Female

DRUGS (1)
  1. NEXIUM [Suspect]
     Route: 048

REACTIONS (5)
  - Cerebrovascular accident [Unknown]
  - Fall [Unknown]
  - Hip fracture [Unknown]
  - Upper limb fracture [Unknown]
  - Visual impairment [Unknown]
